FAERS Safety Report 19131797 (Version 1)
Quarter: 2021Q2

REPORT INFORMATION
  Report Type: Spontaneous
  Country: PK (occurrence: PK)
  Receive Date: 20210414
  Receipt Date: 20210414
  Transmission Date: 20210717
  Serious: Yes (Other)
  Sender: FDA-Public Use
  Company Number: PK-NOVOPROD-796265

PATIENT
  Age: 55 Year
  Sex: Male
  Weight: 98 kg

DRUGS (1)
  1. VICTOZA [Suspect]
     Active Substance: LIRAGLUTIDE
     Indication: TYPE 2 DIABETES MELLITUS
     Dosage: 0.6 MG, QD
     Route: 058
     Dates: start: 20180301

REACTIONS (1)
  - Hypoglycaemic unconsciousness [Recovered/Resolved]

NARRATIVE: CASE EVENT DATE: 20210222
